FAERS Safety Report 7012626-X (Version None)
Quarter: 2010Q3

REPORT INFORMATION
  Report Type: 
  Country: None (occurrence: None)
  Receive Date: 20100924
  Receipt Date: 20100915
  Transmission Date: 20110219
  Serious: Yes (Other)
  Sender: FDA-Public Use
  Company Number: CHPA2010US14761

PATIENT
  Age: 70 Year
  Sex: Female
  Weight: 55.782 kg

DRUGS (2)
  1. EXCEDRIN (MIGRAINE) [Suspect]
     Indication: MIGRAINE
     Dosage: 2 CAPLETS PER DAY 3 DAYS PER WEEK
     Route: 048
  2. IBUPROFEN [Suspect]
     Indication: MIGRAINE
     Dosage: 2 TABLETS,4 DAYS A WEEK
     Route: 048

REACTIONS (1)
  - GASTRIC ULCER [None]
